FAERS Safety Report 4703158-X (Version None)
Quarter: 2005Q2

REPORT INFORMATION
  Report Type: 
  Country: None (occurrence: None)
  Receive Date: 20050629
  Receipt Date: 20050622
  Transmission Date: 20051028
  Serious: Yes (Hospitalization)
  Sender: FDA-Public Use
  Company Number: FR-BRISTOL-MYERS SQUIBB COMPANY-13013388

PATIENT
  Age: 47 Year
  Sex: Female
  Weight: 90 kg

DRUGS (6)
  1. SUSTIVA [Suspect]
     Route: 048
     Dates: start: 20040101
  2. PEGASYS [Suspect]
     Indication: HEPATITIS C
     Route: 058
     Dates: start: 20050110, end: 20050101
  3. REYATAZ [Concomitant]
  4. NORVIR [Concomitant]
  5. REBETOL [Concomitant]
     Indication: HEPATITIS C
     Dosage: DOSE REDUCED FROM 1000 MG TO 800 MG ON 10-JAN-2005
     Dates: end: 20050101
  6. DEROXAT [Concomitant]
     Indication: DEPRESSION
     Dates: start: 20050202, end: 20050401

REACTIONS (6)
  - DEPRESSION [None]
  - ECCHYMOSIS [None]
  - HAEMATOMA [None]
  - LIVER FUNCTION TEST ABNORMAL [None]
  - THROMBOCYTOPENIA [None]
  - WEIGHT DECREASED [None]
